FAERS Safety Report 4654450-9 (Version None)
Quarter: 2005Q2

REPORT INFORMATION
  Report Type: 
  Country: None (occurrence: None)
  Receive Date: 20050505
  Receipt Date: 20050505
  Transmission Date: 20051028
  Serious: Yes (Other)
  Sender: FDA-Public Use
  Company Number: None

PATIENT
  Age: 52 Year
  Sex: Male

DRUGS (9)
  1. ZIAGEN [Suspect]
     Indication: HIV INFECTION
     Dosage: 300 MG BID
     Dates: start: 20011101, end: 20040901
  2. AMBIEN [Concomitant]
  3. ALBUTEROL [Concomitant]
  4. ADVAIR DISKUS 100/50 [Concomitant]
  5. VALTREX [Concomitant]
  6. TEGRETOL [Concomitant]
  7. VIVAMUNE [Concomitant]
  8. EPIVIR [Concomitant]
  9. VIREAD [Concomitant]

REACTIONS (4)
  - ABDOMINAL PAIN [None]
  - HOT FLUSH [None]
  - MUSCULAR WEAKNESS [None]
  - NAUSEA [None]
